FAERS Safety Report 6574217-4 (Version None)
Quarter: 2010Q1

REPORT INFORMATION
  Report Type: 
  Country: None (occurrence: None)
  Receive Date: 20100208
  Receipt Date: 20100204
  Transmission Date: 20100710
  Serious: Yes (Hospitalization, Other)
  Sender: FDA-Public Use
  Company Number: CHPA2010US02541

PATIENT
  Age: 74 Year
  Sex: Male
  Weight: 66.667 kg

DRUGS (2)
  1. GAS-X (NCH) [Suspect]
     Indication: ABDOMINAL DISTENSION
     Dosage: 62.5 MG, UNK
     Route: 048
     Dates: start: 20100131, end: 20100131
  2. PREVACID [Concomitant]
     Indication: DUODENAL ULCER
     Dosage: UNK
     Route: 048

REACTIONS (1)
  - SYNCOPE [None]
